FAERS Safety Report 4309761-3 (Version None)
Quarter: 2004Q1

REPORT INFORMATION
  Report Type: 
  Country: None (occurrence: None)
  Receive Date: 20040301
  Receipt Date: 20040218
  Transmission Date: 20041129
  Serious: Yes (Other)
  Sender: FDA-Public Use
  Company Number: 2004010846

PATIENT
  Age: 76 Year
  Sex: Female

DRUGS (3)
  1. NEURONTIN [Suspect]
     Indication: ILL-DEFINED DISORDER
     Dosage: 900 MG (TID), ORAL
     Route: 048
  2. AMLODIPINE BESYLATE [Concomitant]
  3. MULTIVITAMIN [Concomitant]

REACTIONS (2)
  - ARTERIAL OCCLUSIVE DISEASE [None]
  - WEIGHT INCREASED [None]
